FAERS Safety Report 21077894 (Version 1)
Quarter: 2022Q3

REPORT INFORMATION
  Report Type: Spontaneous
  Country: CN (occurrence: CN)
  Receive Date: 20220713
  Receipt Date: 20220713
  Transmission Date: 20221027
  Serious: Yes (Other)
  Sender: FDA-Public Use
  Company Number: None

PATIENT
  Age: 55 Year
  Sex: Female
  Weight: 62 kg

DRUGS (8)
  1. CYCLOPHOSPHAMIDE [Suspect]
     Active Substance: CYCLOPHOSPHAMIDE
     Indication: Breast cancer female
     Dosage: UNK UNK, QD FIRST CHEMOTHERAPY; CYCLOPHOSPHAMIDE FOR INJECTION+ NS
     Route: 042
  2. CYCLOPHOSPHAMIDE [Suspect]
     Active Substance: CYCLOPHOSPHAMIDE
     Dosage: 930 MG, QD SECOND CHEMOTHERAPY; CYCLOPHOSPHAMIDE FOR INJECTION (ENDOXAN CTX) (930 MG) + NS (50 ML)
     Route: 042
     Dates: start: 20220505, end: 20220505
  3. SODIUM CHLORIDE [Suspect]
     Active Substance: SODIUM CHLORIDE
     Indication: Medication dilution
     Dosage: UNK, QD FIRST CHEMOTHERAPY; CYCLOPHOSPHAMIDE FOR INJECTION+ NS
     Route: 042
  4. SODIUM CHLORIDE [Suspect]
     Active Substance: SODIUM CHLORIDE
     Dosage: 50 ML, QD SECOND CHEMOTHERAPY; CYCLOPHOSPHAMIDE FOR INJECTION (ENDOXAN CTX) (930 MG) + NS (50 ML)
     Route: 042
     Dates: start: 20220505, end: 20220505
  5. SODIUM CHLORIDE [Suspect]
     Active Substance: SODIUM CHLORIDE
     Dosage: UNK, QD FIRST CHEMOTHERAPY; DOCETAXEL INJECTION+ NS
     Route: 041
  6. SODIUM CHLORIDE [Suspect]
     Active Substance: SODIUM CHLORIDE
     Dosage: 250 ML, QD SECOND CHEMOTHERAPY; DOCETAXEL INJECTION (HUIYU) (115 MG) + NS (250 ML)
     Route: 041
     Dates: start: 20220505, end: 20220505
  7. DOCETAXEL [Suspect]
     Active Substance: DOCETAXEL
     Indication: Breast cancer female
     Dosage: UNK UNK, QD FIRST CHEMOTHERAPY; DOCETAXEL INJECTION+ NS
     Route: 041
  8. DOCETAXEL [Suspect]
     Active Substance: DOCETAXEL
     Dosage: 115 MG, QD SECOND CHEMOTHERAPY; DOCETAXEL INJECTION (HUIYU) (115 MG) + NS (250 ML)
     Route: 041
     Dates: start: 20220505, end: 20220505

REACTIONS (2)
  - White blood cell count decreased [Recovered/Resolved]
  - Agranulocytosis [Recovered/Resolved]

NARRATIVE: CASE EVENT DATE: 20220511
